FAERS Safety Report 23167496 (Version 1)
Quarter: 2023Q4

REPORT INFORMATION
  Report Type: Spontaneous
  Country: US (occurrence: US)
  Receive Date: 20231109
  Receipt Date: 20231109
  Transmission Date: 20240110
  Serious: No
  Sender: FDA-Public Use
  Company Number: US-SA-SAC20231101000963

PATIENT
  Age: 52 Year
  Sex: Female
  Weight: 145.1 kg

DRUGS (7)
  1. DUPIXENT [Suspect]
     Active Substance: DUPILUMAB
     Indication: Dermatitis allergic
     Dosage: 300 MG QOW
     Route: 058
  2. ALLEGRA [Concomitant]
     Active Substance: FEXOFENADINE HYDROCHLORIDE
  3. CALCIUM\VITAMIN D [Concomitant]
     Active Substance: CALCIUM\VITAMIN D
  4. FERROUS SULFATE [Concomitant]
     Active Substance: FERROUS SULFATE
  5. FLUTICASONE [Concomitant]
     Active Substance: FLUTICASONE
  6. LEVOTHYROXINE [Concomitant]
     Active Substance: LEVOTHYROXINE
  7. PAROXETINE [Concomitant]
     Active Substance: PAROXETINE

REACTIONS (1)
  - Nausea [Unknown]
